FAERS Safety Report 21376539 (Version 1)
Quarter: 2022Q3

REPORT INFORMATION
  Report Type: Spontaneous
  Country: US (occurrence: None)
  Receive Date: 20220924
  Receipt Date: 20220924
  Transmission Date: 20221027
  Serious: Yes (Hospitalization)
  Sender: FDA-Public Use
  Company Number: None

PATIENT
  Age: 74 Year
  Sex: Female
  Weight: 106.5 kg

DRUGS (3)
  1. FLUOROURACIL [Suspect]
     Active Substance: FLUOROURACIL
     Dates: end: 20220914
  2. LEUCOVORIN CALCIUM [Suspect]
     Active Substance: LEUCOVORIN CALCIUM
     Dates: end: 20220914
  3. ELOXATIN [Concomitant]
     Active Substance: OXALIPLATIN
     Dates: end: 20220914

REACTIONS (3)
  - Abdominal pain [None]
  - Intestinal perforation [None]
  - Large intestinal obstruction [None]

NARRATIVE: CASE EVENT DATE: 20220920
